FAERS Safety Report 11021042 (Version 3)
Quarter: 2015Q3

REPORT INFORMATION
  Report Type: Spontaneous
  Country: JP (occurrence: JP)
  Receive Date: 20150413
  Receipt Date: 20150810
  Transmission Date: 20151125
  Serious: Yes (Other)
  Sender: FDA-Public Use
  Company Number: JP-SHIRE-JP201503114

PATIENT
  Age: 64 Year
  Sex: Female

DRUGS (14)
  1. MARZULENE-S [Concomitant]
     Active Substance: SODIUM GUALENATE
     Indication: GASTRITIS
     Dosage: 1.5 G, UNKNOWN
     Route: 048
     Dates: start: 20060830
  2. FOSRENOL [Suspect]
     Active Substance: LANTHANUM CARBONATE
     Indication: HYPERPHOSPHATAEMIA
     Dosage: 750 MG (PER DAY), OTHER
     Route: 048
     Dates: start: 20091118, end: 20100622
  3. DIOVAN [Concomitant]
     Active Substance: VALSARTAN
     Indication: HYPERTENSION
     Dosage: 80 MG, UNKNOWN
     Route: 048
     Dates: start: 20070924
  4. BERIZYM                            /01945301/ [Concomitant]
     Indication: DYSPEPSIA
     Dosage: 1.5 G, UNKNOWN
     Route: 048
     Dates: start: 20060830
  5. FOSRENOL [Suspect]
     Active Substance: LANTHANUM CARBONATE
     Dosage: 1500 MG (PER DAY), OTHER
     Route: 048
     Dates: start: 20100623, end: 20130829
  6. REGPARA [Concomitant]
     Active Substance: CINACALCET HYDROCHLORIDE
     Indication: HYPERPARATHYROIDISM SECONDARY
     Dosage: 25 MG, UNKNOWN
     Route: 048
     Dates: start: 20130422
  7. SENNA [Concomitant]
     Active Substance: SENNA LEAF\SENNOSIDES\SENNOSIDES A AND B
     Indication: CONSTIPATION
     Dosage: 1.5 G, UNKNOWN
     Route: 048
     Dates: start: 20080107
  8. KALLIKREIN [Concomitant]
     Active Substance: KALLIKREIN
     Indication: HYPERTENSION
     Dosage: 30 IU, UNKNOWN
     Route: 048
     Dates: start: 20060421
  9. CALTAN [Concomitant]
     Active Substance: CALCIUM CARBONATE
     Indication: HYPERPHOSPHATAEMIA
     Dosage: 1500 MG, UNKNOWN
     Route: 048
     Dates: start: 20120517
  10. CARDENALIN [Concomitant]
     Active Substance: DOXAZOSIN MESYLATE
     Indication: HYPERTENSION
     Dosage: 2 MG, UNKNOWN
     Route: 048
     Dates: start: 20070209
  11. ZESULAN [Concomitant]
     Active Substance: MEQUITAZINE
     Indication: ECZEMA
     Dosage: 6 MG, UNKNOWN
     Route: 048
     Dates: start: 20080213
  12. VASOLAN                            /00014302/ [Concomitant]
     Active Substance: VERAPAMIL HYDROCHLORIDE
     Indication: HYPERTENSION
     Dosage: 120 MG, UNKNOWN
     Route: 048
     Dates: start: 20060626
  13. THYRADIN S [Concomitant]
     Active Substance: LEVOTHYROXINE SODIUM
     Indication: HYPOTHYROIDISM
     Dosage: 25 ?G, UNKNOWN
     Route: 048
     Dates: start: 20010419
  14. TAKEPRON [Concomitant]
     Active Substance: LANSOPRAZOLE
     Indication: GASTRITIS EROSIVE
     Dosage: 15 MG, UNKNOWN
     Route: 048
     Dates: start: 20061004

REACTIONS (5)
  - Gastric mucosal hypertrophy [Not Recovered/Not Resolved]
  - Nausea [Recovering/Resolving]
  - Decreased appetite [Recovering/Resolving]
  - Medication residue present [Not Recovered/Not Resolved]
  - Weight decreased [Recovered/Resolved]

NARRATIVE: CASE EVENT DATE: 20130610
